FAERS Safety Report 6480378-8 (Version None)
Quarter: 2009Q4

REPORT INFORMATION
  Report Type: 
  Country: None (occurrence: None)
  Receive Date: 20091202
  Receipt Date: 20091120
  Transmission Date: 20100525
  Serious: Yes (Hospitalization)
  Sender: FDA-Public Use
  Company Number: 233378J09USA

PATIENT
  Age: 59 Year
  Sex: Female

DRUGS (11)
  1. REBIF [Suspect]
     Indication: MULTIPLE SCLEROSIS
     Dosage: 44 MCG, 3 IN 1 WEEKS, SUBCUTANEOUS
     Route: 058
     Dates: start: 20071112
  2. EVISTA [Concomitant]
  3. DDAVP [Concomitant]
  4. HYDROCODONE (HYDROCODONE) [Concomitant]
  5. FENTANYL [Concomitant]
  6. ZANAFLEX [Concomitant]
  7. XANAX [Concomitant]
  8. MIRAPEX [Concomitant]
  9. VITAMIN D [Concomitant]
  10. POTASSIUM (POTASSIUM /00031401/) [Concomitant]
  11. HYDROCORTISONE (HYDROCORTISONE /00028601/) [Concomitant]

REACTIONS (3)
  - ARTHRALGIA [None]
  - JOINT DISLOCATION [None]
  - PROCEDURAL PAIN [None]
